FAERS Safety Report 23882029 (Version 2)
Quarter: 2024Q2

REPORT INFORMATION
  Report Type: Spontaneous
  Country: US (occurrence: US)
  Receive Date: 20240521
  Receipt Date: 20240626
  Transmission Date: 20240716
  Serious: Yes (Other)
  Sender: FDA-Public Use
  Company Number: US-009507513-2405USA004565

PATIENT
  Age: 71 Year
  Sex: Male
  Weight: 85 kg

DRUGS (13)
  1. WELIREG [Suspect]
     Active Substance: BELZUTIFAN
     Indication: Renal cell carcinoma
     Dosage: 120 MILLIGRAM, UNKNOWN
     Route: 048
     Dates: start: 20240412, end: 20240506
  2. WELIREG [Suspect]
     Active Substance: BELZUTIFAN
     Dosage: 80 MILLIGRAM
     Route: 048
     Dates: start: 20240607
  3. AMLODIPINE [Concomitant]
     Active Substance: AMLODIPINE BESYLATE
     Dosage: UNK, STRENGHT 5 MG
  4. ASPIRIN [Concomitant]
     Active Substance: ASPIRIN
     Dosage: UNK, STRENGHT 81 MG
  5. ATORVASTATIN [Concomitant]
     Active Substance: ATORVASTATIN
     Dosage: UNK, STRENGHT 10 MG
  6. VITAMIN B12 [Concomitant]
     Active Substance: CYANOCOBALAMIN
     Dosage: UNK, STRENGHT 500 MICROGRAM
  7. HYDROCORTISONE [Concomitant]
     Active Substance: HYDROCORTISONE\HYDROCORTISONE ACETATE
     Dosage: UNK, STRENGHT 5 MG
  8. FIASP [Concomitant]
     Active Substance: INSULIN ASPART
     Dosage: UNK
  9. TRESIBA [Concomitant]
     Active Substance: INSULIN DEGLUDEC
     Dosage: UNK
  10. LATANOPROST [Concomitant]
     Active Substance: LATANOPROST
     Dosage: UNK
     Dates: start: 20211016
  11. LEVOTHYROXINE [Concomitant]
     Active Substance: LEVOTHYROXINE\LEVOTHYROXINE SODIUM
  12. M.V.I. [VITAMINS NOS] [Concomitant]
     Dosage: UNK
  13. LORATADINE [Concomitant]
     Active Substance: LORATADINE
     Dosage: UNK

REACTIONS (4)
  - Cardiomyopathy [Unknown]
  - Palpitations [Unknown]
  - Oxygen saturation decreased [Unknown]
  - Bundle branch block [Unknown]

NARRATIVE: CASE EVENT DATE: 20240506
